FAERS Safety Report 4698435-5 (Version None)
Quarter: 2005Q2

REPORT INFORMATION
  Report Type: 
  Country: None (occurrence: None)
  Receive Date: 20050623
  Receipt Date: 20050613
  Transmission Date: 20051028
  Serious: Yes (Hospitalization, Other)
  Sender: FDA-Public Use
  Company Number: 2005PK01054

PATIENT
  Age: 23433 Day
  Sex: Female
  Weight: 65 kg

DRUGS (1)
  1. NOLVADEX [Suspect]
     Indication: BREAST CANCER
     Route: 048
     Dates: start: 20000512, end: 20050517

REACTIONS (1)
  - SMEAR CERVIX ABNORMAL [None]
